FAERS Safety Report 5674614-5 (Version None)
Quarter: 2008Q1

REPORT INFORMATION
  Report Type: 
  Country: None (occurrence: None)
  Receive Date: 20080320
  Receipt Date: 20080313
  Transmission Date: 20080703
  Serious: Yes (Hospitalization)
  Sender: FDA-Public Use
  Company Number: IT-JNJFOC-20080304335

PATIENT
  Sex: Female

DRUGS (3)
  1. CONTRAMAL [Suspect]
     Indication: PAIN
     Route: 065
  2. SELEPARINA [Suspect]
     Indication: DEEP VEIN THROMBOSIS
     Route: 058
  3. VASERETIC [Concomitant]
     Route: 065

REACTIONS (1)
  - BILIARY COLIC [None]
